FAERS Safety Report 7578880-0 (Version None)
Quarter: 2011Q2

REPORT INFORMATION
  Report Type: 
  Country: None (occurrence: None)
  Receive Date: 20110628
  Receipt Date: 20110621
  Transmission Date: 20111010
  Serious: Yes (Other)
  Sender: FDA-Public Use
  Company Number: JP-PFIZER INC-2011106246

PATIENT
  Age: 72 Year
  Sex: Male

DRUGS (3)
  1. PREDNISOLONE [Concomitant]
     Indication: COLLAGEN DISORDER
     Dosage: UNK
     Route: 048
  2. VARENICLINE TARTRATE [Suspect]
     Indication: NICOTINE DEPENDENCE
     Dosage: 0.5 MG, 1X/DAY
     Route: 048
     Dates: start: 20110507, end: 20110525
  3. CYCLOPHOSPHAMIDE [Concomitant]
     Indication: COLLAGEN DISORDER
     Dosage: UNK
     Route: 048

REACTIONS (2)
  - DYSPHORIA [None]
  - RENAL IMPAIRMENT [None]
